FAERS Safety Report 9538628 (Version 2)
Quarter: 2013Q4

REPORT INFORMATION
  Report Type: Spontaneous
  Country: US (occurrence: None)
  Receive Date: 20130917
  Receipt Date: 20131002
  Transmission Date: 20140711
  Serious: Yes (Hospitalization, Other)
  Sender: FDA-Public Use
  Company Number: 2013-US-000174

PATIENT
  Age: 33 Year
  Sex: Female

DRUGS (2)
  1. XYREM (SODIUM OXYBATE) ORAL SOLUTION, 500MG/ML [Suspect]
     Indication: NARCOLEPSY
     Route: 048
     Dates: start: 20050411
  2. XYREM (SODIUM OXYBATE) ORAL SOLUTION, 500MG/ML [Suspect]
     Indication: CATAPLEXY
     Route: 048
     Dates: start: 20050411

REACTIONS (8)
  - Cellulitis [None]
  - Local swelling [None]
  - Suicidal ideation [None]
  - Paralysis [None]
  - Peripheral vascular disorder [None]
  - Feeling abnormal [None]
  - Fear [None]
  - Cataplexy [None]
